FAERS Safety Report 22145226 (Version 1)
Quarter: 2023Q1

REPORT INFORMATION
  Report Type: Spontaneous
  Country: US (occurrence: US)
  Receive Date: 20230328
  Receipt Date: 20230328
  Transmission Date: 20230418
  Serious: No
  Sender: FDA-Public Use
  Company Number: US-HORIZON THERAPEUTICS-HZN-2021-003351

PATIENT

DRUGS (2)
  1. RAVICTI [Suspect]
     Active Substance: GLYCEROL PHENYLBUTYRATE
     Indication: Aspartate-glutamate-transporter deficiency
     Dosage: 2 ML, TID
     Route: 065
     Dates: start: 20200612
  2. ARGININE [Concomitant]
     Active Substance: ARGININE
     Indication: Argininosuccinate synthetase deficiency
     Dosage: UNK
     Route: 065

REACTIONS (2)
  - Accidental overdose [Unknown]
  - Off label use [Unknown]
